FAERS Safety Report 23794336 (Version 1)
Quarter: 2024Q2

REPORT INFORMATION
  Report Type: Other
  Country: US (occurrence: US)
  Receive Date: 20240429
  Receipt Date: 20240429
  Transmission Date: 20240716
  Serious: No
  Sender: FDA-Public Use
  Company Number: US-AVEVA-000622

PATIENT
  Age: 52 Year
  Sex: Male

DRUGS (2)
  1. CLONIDINE TRANSDERMAL SYSTEM [Suspect]
     Active Substance: CLONIDINE
     Indication: Drug withdrawal syndrome
     Dosage: UNK
     Route: 048
  2. CLONIDINE TRANSDERMAL SYSTEM [Suspect]
     Active Substance: CLONIDINE
     Indication: Drug withdrawal syndrome
     Dosage: UNK
     Route: 062

REACTIONS (1)
  - Off label use [Unknown]
